FAERS Safety Report 12606014 (Version 1)
Quarter: 2016Q3

REPORT INFORMATION
  Report Type: Spontaneous
  Country: US (occurrence: None)
  Receive Date: 20160728
  Receipt Date: 20160728
  Transmission Date: 20161109
  Serious: Yes (Other)
  Sender: FDA-Public Use
  Company Number: None

PATIENT
  Age: 59 Year
  Sex: Female
  Weight: 86.18 kg

DRUGS (4)
  1. BENADRYL [Suspect]
     Active Substance: DIPHENHYDRAMINE HYDROCHLORIDE
     Indication: INSOMNIA
     Dosage: 1 CAPSULE(S) AT BEDTIME TAKEN BY MOUTH
     Route: 048
     Dates: start: 20160714, end: 20160725
  2. ULTRAM [Concomitant]
     Active Substance: TRAMADOL HYDROCHLORIDE
  3. MULTIVITAMIN [Concomitant]
     Active Substance: VITAMINS
  4. CALCIUM MAGNESIUM ZINC [Concomitant]
     Active Substance: CALCIUM\MAGNESIUM\ZINC

REACTIONS (5)
  - Product counterfeit [None]
  - Asthenia [None]
  - Product outer packaging issue [None]
  - Nausea [None]
  - Drug ineffective [None]

NARRATIVE: CASE EVENT DATE: 20160714
